FAERS Safety Report 24588739 (Version 1)
Quarter: 2024Q4

REPORT INFORMATION
  Report Type: Other
  Country: JP (occurrence: JP)
  Receive Date: 20241107
  Receipt Date: 20241107
  Transmission Date: 20250114
  Serious: Yes (Other)
  Sender: B BRAUN
  Company Number: JP-B.Braun Medical Inc.-2164651

PATIENT
  Age: 55 Year
  Sex: Male

DRUGS (10)
  1. HEPARIN SODIUM IN DEXTROSE [Suspect]
     Active Substance: HEPARIN SODIUM
     Indication: Pulmonary embolism
  2. CICLESONIDE [Concomitant]
     Active Substance: CICLESONIDE
  3. ROCURONIUM [Concomitant]
     Active Substance: ROCURONIUM BROMIDE
  4. FENTANYL [Concomitant]
     Active Substance: FENTANYL
  5. PROPOFOL [Concomitant]
     Active Substance: PROPOFOL
  6. MIDAZOLAM [Concomitant]
     Active Substance: MIDAZOLAM
  7. MESALAMINE [Concomitant]
     Active Substance: MESALAMINE
  8. XYLOCAINE [Concomitant]
     Active Substance: LIDOCAINE HYDROCHLORIDE
  9. METHYLPREDNISOLONE [Concomitant]
     Active Substance: METHYLPREDNISOLONE
  10. FAVIPIRAVIR [Concomitant]
     Active Substance: FAVIPIRAVIR

REACTIONS (1)
  - Anaemia [Unknown]
